FAERS Safety Report 7251448-1 (Version None)
Quarter: 2011Q1

REPORT INFORMATION
  Report Type: 
  Country: None (occurrence: None)
  Receive Date: 20110128
  Receipt Date: 20110119
  Transmission Date: 20110831
  Serious: Yes (Other)
  Sender: FDA-Public Use
  Company Number: PHHY2010CA86957

PATIENT
  Sex: Male

DRUGS (1)
  1. SANDOSTATIN LAR [Suspect]
     Indication: GASTROINTESTINAL ANGIODYSPLASIA HAEMORRHAGIC
     Dosage: 20 MG,ONCE A MONTH
     Route: 030
     Dates: start: 20101217

REACTIONS (2)
  - DIARRHOEA [None]
  - BLOOD PRESSURE DECREASED [None]
